FAERS Safety Report 5520899-5 (Version None)
Quarter: 2007Q4

REPORT INFORMATION
  Report Type: 
  Country: None (occurrence: None)
  Receive Date: 20071119
  Receipt Date: 20071114
  Transmission Date: 20080405
  Serious: Yes (Hospitalization)
  Sender: FDA-Public Use
  Company Number: D0054946A

PATIENT
  Age: 77 Year
  Sex: Male
  Weight: 72 kg

DRUGS (4)
  1. ARIXTRA [Suspect]
     Indication: THROMBOSIS
     Dosage: 2.5MG PER DAY
     Route: 065
     Dates: start: 20070704, end: 20071024
  2. ACC AKUT [Concomitant]
     Indication: COUGH
     Dosage: 600MG PER DAY
     Route: 048
     Dates: start: 20070918
  3. DOXYCYCLIN [Concomitant]
     Indication: INFECTION
     Dosage: 100MG PER DAY
     Route: 048
     Dates: start: 20070918, end: 20070927
  4. ZOMETA [Concomitant]
     Indication: SEXUALLY TRANSMITTED DISEASE
     Route: 065

REACTIONS (2)
  - DYSPNOEA [None]
  - THROMBOCYTOPENIA [None]
